FAERS Safety Report 12455717 (Version 1)
Quarter: 2016Q2

REPORT INFORMATION
  Report Type: Spontaneous
  Country: BR (occurrence: BR)
  Receive Date: 20160610
  Receipt Date: 20160610
  Transmission Date: 20160815
  Serious: Yes (Other)
  Sender: FDA-Public Use
  Company Number: BR-PFIZER INC-2016290949

PATIENT
  Sex: Male

DRUGS (1)
  1. CITRATO DE SILDENAFILA TEUTO [Suspect]
     Active Substance: SILDENAFIL CITRATE
     Dosage: UNK
     Dates: end: 201512

REACTIONS (6)
  - Throat tightness [Not Recovered/Not Resolved]
  - Intentional product misuse [Unknown]
  - Syncope [Not Recovered/Not Resolved]
  - Tremor [Not Recovered/Not Resolved]
  - Cyanopsia [Not Recovered/Not Resolved]
  - Dizziness [Not Recovered/Not Resolved]

NARRATIVE: CASE EVENT DATE: 20160102
